FAERS Safety Report 6980993-9 (Version None)
Quarter: 2010Q3

REPORT INFORMATION
  Report Type: 
  Country: None (occurrence: None)
  Receive Date: 20100914
  Receipt Date: 20100906
  Transmission Date: 20110219
  Serious: Yes (Other)
  Sender: FDA-Public Use
  Company Number: B0674012A

PATIENT
  Age: 83 Year
  Sex: Female

DRUGS (4)
  1. REQUIP [Suspect]
     Indication: PRODUCT USED FOR UNKNOWN INDICATION
     Dosage: 1MG PER DAY
     Route: 048
     Dates: start: 20100821, end: 20100823
  2. CARBIDOPA AND LEVODOPA [Concomitant]
     Route: 048
  3. PRAMIPEXOLE DIHYDROCHLORIDE [Concomitant]
     Route: 048
  4. RIVOTRIL [Concomitant]
     Route: 048

REACTIONS (4)
  - AGITATION [None]
  - DRUG PRESCRIBING ERROR [None]
  - HALLUCINATION [None]
  - MASKED FACIES [None]
